FAERS Safety Report 8791158 (Version 1)
Quarter: 2012Q4

REPORT INFORMATION
  Report Type: Spontaneous
  Country: US (occurrence: None)
  Receive Date: 20120912
  Receipt Date: 20120912
  Transmission Date: 20130627
  Serious: Yes (Other)
  Sender: FDA-Public Use
  Company Number: AUR-APL-2012-03848

PATIENT
  Age: 70 Year
  Sex: Female

DRUGS (1)
  1. ALENDRONIC ACID (ALENDRONIC ACID) [Suspect]
     Indication: OSTEOPOROSIS

REACTIONS (3)
  - Bronchiectasis [None]
  - Choking [None]
  - Foreign body aspiration [None]
